FAERS Safety Report 10137341 (Version 4)
Quarter: 2014Q2

REPORT INFORMATION
  Report Type: Spontaneous
  Country: US (occurrence: US)
  Receive Date: 20140429
  Receipt Date: 20140619
  Transmission Date: 20141212
  Serious: Yes (Hospitalization, Other)
  Sender: FDA-Public Use
  Company Number: US-PFIZER INC-2013096167

PATIENT
  Age: 59 Year
  Sex: Female
  Weight: 68.03 kg

DRUGS (39)
  1. VFEND [Suspect]
     Dosage: 200 MG, BID
     Route: 048
     Dates: start: 20121109
  2. PROGRAF [Concomitant]
     Dosage: 0.5 MG, 2X/DAY
     Route: 048
  3. PROGRAF [Concomitant]
     Dosage: 1 MG, 2X/DAY
     Route: 048
  4. REQUIP [Concomitant]
     Indication: RESTLESS LEGS SYNDROME
     Dosage: 1 MG, AT BED TIME
     Route: 048
  5. IMURAN [Concomitant]
     Dosage: 50MG IN AM, 25 MG IN PM, 2X/DAY
     Route: 048
  6. IMURAN [Concomitant]
     Dosage: 50MG IN AM, 25 MG IN PM
  7. IMURAN [Concomitant]
     Dosage: 75 MG, 2X/DAY
     Route: 048
  8. KEPPRA [Concomitant]
     Dosage: 500 MG, 2 TABS TWICE DAILY
     Route: 048
  9. PCE [Concomitant]
     Dosage: 250 MG, 4X/DAY
     Route: 048
  10. DELTASONE [Concomitant]
     Dosage: 5 MG, 2X/DAY
     Route: 048
  11. BACTRIM DS [Concomitant]
     Dosage: SULFAMETHOXAZOLE 800MG/TRIMETHOPRIM 160MG,TAKE 1 TAB EVERY MONDAY, WEDNESDAY, FRIDAY
     Route: 048
  12. PRILOSEC [Concomitant]
     Dosage: 40 MG, 2X/DAY
     Route: 048
  13. INDERAL [Concomitant]
     Indication: ESSENTIAL TREMOR
     Dosage: 40 MG, 3X/DAY
     Route: 048
     Dates: start: 20120504
  14. DOMPERIDONE [Concomitant]
     Dosage: 1 DF, 4X/DAY
  15. PRAVACHOL [Concomitant]
     Indication: HYPERCHOLESTEROLAEMIA
     Dosage: 20 MG, DAILY
     Route: 048
  16. PRAVACHOL [Concomitant]
     Dosage: 40 MG, 1X/DAY
     Route: 048
  17. LOVAZA [Concomitant]
     Dosage: 1 G, DAILY
     Route: 048
  18. LOVAZA [Concomitant]
     Dosage: 1 DF, 2X/DAY
     Route: 048
  19. CULTURELLE [Concomitant]
     Dosage: 1 DF, DAILY
     Route: 048
  20. CELEXA [Concomitant]
     Dosage: 20 MG, DAILY
     Route: 048
  21. VITAMIN D3 [Concomitant]
     Indication: OSTEOPOROSIS
     Dosage: 4000 IU, DAILY
     Route: 048
  22. FERROUS SULFATE [Concomitant]
     Dosage: 325 MG, TWICE DAILY
     Route: 048
  23. VALCYTE [Concomitant]
     Dosage: 450 MG, DAILY
     Route: 048
  24. SODIUM BICARBONATE/SODIUM CHLORIDE [Concomitant]
     Dosage: IN AFFECTED NOSTRIL AS DIRECTED
     Route: 045
  25. JANUVIA [Concomitant]
     Dosage: 50 MG, DAILY
  26. VITAMIN C [Concomitant]
     Dosage: 500 MG, 2X/DAY
     Route: 048
  27. CITRACAL + D [Concomitant]
     Indication: OSTEOPOROSIS
     Dosage: 2 DF, 2X/DAY
     Route: 048
  28. MAG-OX [Concomitant]
     Dosage: 400 MG, 2X/DAY
     Route: 048
  29. NOVOLOG [Concomitant]
     Dosage: UNK
     Route: 058
  30. NASONEX [Concomitant]
     Dosage: 2 DF, DAILY
     Route: 045
  31. ZOFRAN [Concomitant]
     Indication: NAUSEA
     Dosage: 8 MG, EVERY 8 HOURS AS NEEDED
     Route: 048
  32. ZOFRAN [Concomitant]
     Indication: VOMITING
  33. TYLENOL EXTRA STRENGTH [Concomitant]
     Indication: PAIN
     Dosage: 500 MG, EVERY 6 HOURS AS NEEDED
     Route: 048
  34. BENADRYL ALLERGY [Concomitant]
     Indication: INSOMNIA
     Dosage: 25 MG, AS NEEDED
     Route: 048
  35. THERAGRAN [Concomitant]
     Dosage: 1 DF, DAILY
     Route: 048
  36. LANTUS [Concomitant]
     Dosage: 1-10 UNITS, DAILY BEFORE MEALS
     Route: 058
  37. RESTORIL [Concomitant]
     Dosage: AT 2 SPRAYS IN BOTH NOSTRILS DAILY
     Route: 045
  38. NORCO 5/325 [Concomitant]
     Indication: PAIN
     Dosage: 1 DF, EVERY 6 HOURS AS NEEDED
     Route: 048
  39. NEILMED SINUS RINSE KIT [Concomitant]

REACTIONS (8)
  - Nausea [Unknown]
  - Diarrhoea [Unknown]
  - Vomiting [Unknown]
  - Lung transplant rejection [Unknown]
  - Pneumonia pseudomonal [Unknown]
  - Pneumonia aspiration [Unknown]
  - Weight increased [Unknown]
  - Ligament sprain [Unknown]
